FAERS Safety Report 11509858 (Version 1)
Quarter: 2015Q3

REPORT INFORMATION
  Report Type: Spontaneous
  Country: US (occurrence: US)
  Receive Date: 20150915
  Receipt Date: 20150915
  Transmission Date: 20151125
  Serious: No
  Sender: FDA-Public Use
  Company Number: US-JNJFOC-20150117067

PATIENT
  Sex: Female

DRUGS (1)
  1. VISINE A [Suspect]
     Active Substance: NAPHAZOLINE HYDROCHLORIDE\PHENIRAMINE MALEATE
     Indication: EYE COMPLICATION ASSOCIATED WITH DEVICE
     Dosage: JUST ONE TIME
     Route: 047
     Dates: start: 20150121

REACTIONS (2)
  - Product use issue [Unknown]
  - Mydriasis [Unknown]

NARRATIVE: CASE EVENT DATE: 20150121
